FAERS Safety Report 15577125 (Version 2)
Quarter: 2019Q1

REPORT INFORMATION
  Report Type: Report from Study
  Country: None (occurrence: US)
  Receive Date: 20181101
  Receipt Date: 20190201
  Transmission Date: 20190417
  Serious: Yes (Other)
  Sender: FDA-Public Use
  Company Number: US-ABBVIE-18K-163-2437944-00

PATIENT
  Sex: Male

DRUGS (4)
  1. IBRUTINIB [Suspect]
     Active Substance: IBRUTINIB
     Indication: PRODUCT USED FOR UNKNOWN INDICATION
     Route: 065
  2. VENCLEXTA [Suspect]
     Active Substance: VENETOCLAX
     Indication: CHRONIC LYMPHOCYTIC LEUKAEMIA
     Route: 048
     Dates: start: 20180423
  3. VENCLEXTA [Suspect]
     Active Substance: VENETOCLAX
     Route: 048
  4. VENCLEXTA [Suspect]
     Active Substance: VENETOCLAX
     Route: 048

REACTIONS (17)
  - Gastrointestinal oedema [Unknown]
  - Hepatomegaly [Unknown]
  - Cough [Unknown]
  - Lymphadenopathy [Unknown]
  - Kidney angiomyolipoma [Unknown]
  - Gastric mucosal lesion [Unknown]
  - Drug intolerance [Unknown]
  - Thrombocytopenia [Unknown]
  - Tumour lysis syndrome [Unknown]
  - Biliary adenoma [Unknown]
  - White blood cell count decreased [Unknown]
  - Prostate cancer [Unknown]
  - Bradycardia [Unknown]
  - Hepatic adenoma [Unknown]
  - Neutropenia [Unknown]
  - Intestinal mass [Unknown]
  - Chronic lymphocytic leukaemia recurrent [Unknown]

NARRATIVE: CASE EVENT DATE: 2018
